FAERS Safety Report 22184044 (Version 9)
Quarter: 2023Q4

REPORT INFORMATION
  Report Type: Report from Study
  Country: CA (occurrence: CA)
  Receive Date: 20230407
  Receipt Date: 20231011
  Transmission Date: 20240109
  Serious: Yes (Hospitalization, Other)
  Sender: FDA-Public Use
  Company Number: CA-JNJFOC-20230404522

PATIENT
  Age: 7 Decade
  Sex: Female
  Weight: 49 kg

DRUGS (4)
  1. STELARA [Suspect]
     Active Substance: USTEKINUMAB
     Indication: Colitis ulcerative
     Dosage: EXPIRY DATE: -JAN-2026. PATIENT^S LAST STELARA INJECTION WAS ON 08-AUG-2023. THE PATIENT REQUIRED RE
     Route: 058
     Dates: start: 20200825
  2. STELARA [Suspect]
     Active Substance: USTEKINUMAB
     Dosage: IV REINDUCTION
     Route: 042
     Dates: start: 20231005
  3. PREDNISONE [Suspect]
     Active Substance: PREDNISONE
     Indication: Haematuria
     Dosage: HIGH DOSE
     Route: 065
  4. PREDNISONE [Suspect]
     Active Substance: PREDNISONE
     Indication: Colitis microscopic
     Dosage: TAPERING OFF 2 PILL AT THE TIME OF REPORT  THEN WILL DOWN TO 1
     Route: 065

REACTIONS (14)
  - Device related infection [Unknown]
  - Urinary tract infection [Recovered/Resolved]
  - Pneumonia [Recovered/Resolved]
  - Colitis microscopic [Recovering/Resolving]
  - Spinal fracture [Unknown]
  - Back injury [Unknown]
  - Colitis ulcerative [Not Recovered/Not Resolved]
  - Fungal infection [Unknown]
  - Bladder disorder [Not Recovered/Not Resolved]
  - Haematuria [Recovered/Resolved]
  - Oedema peripheral [Recovering/Resolving]
  - Pain [Unknown]
  - Hernia [Unknown]
  - Fatigue [Unknown]

NARRATIVE: CASE EVENT DATE: 20230101
